FAERS Safety Report 5344183-8 (Version None)
Quarter: 2007Q2

REPORT INFORMATION
  Report Type: 
  Country: None (occurrence: None)
  Receive Date: 20070604
  Receipt Date: 20070524
  Transmission Date: 20071010
  Serious: Yes (Other)
  Sender: FDA-Public Use
  Company Number: BR-ROCHE-499490

PATIENT
  Age: 21 Year
  Sex: Female

DRUGS (2)
  1. ISOTRETINOIN [Suspect]
     Indication: ACNE
     Route: 048
     Dates: start: 20070301, end: 20070401
  2. CICLO [Concomitant]
     Indication: CONTRACEPTION
     Dosage: REPORTED DRUG NAME: CICLO 21.
     Route: 048
     Dates: start: 20061201, end: 20070301

REACTIONS (2)
  - NO ADVERSE EFFECT [None]
  - PREGNANCY [None]
